FAERS Safety Report 4761964-X (Version None)
Quarter: 2005Q3

REPORT INFORMATION
  Report Type: 
  Country: None (occurrence: None)
  Receive Date: 20050906
  Receipt Date: 20050825
  Transmission Date: 20060218
  Serious: Yes (Death, Hospitalization)
  Sender: FDA-Public Use
  Company Number: GB-MERCK-0508GBR00147

PATIENT
  Age: 58 Year
  Sex: Male

DRUGS (1)
  1. VIOXX [Suspect]
     Indication: ARTHRITIS
     Route: 065
     Dates: start: 20000101

REACTIONS (6)
  - ANOREXIA [None]
  - FEELING COLD [None]
  - IRRITABILITY [None]
  - MYOCARDIAL INFARCTION [None]
  - VOMITING [None]
  - WEIGHT DECREASED [None]
